FAERS Safety Report 4951579-2 (Version None)
Quarter: 2006Q1

REPORT INFORMATION
  Report Type: 
  Country: None (occurrence: None)
  Receive Date: 20060323
  Receipt Date: 20051130
  Transmission Date: 20060701
  Serious: Yes (Death, Life-Threatening, Hospitalization)
  Sender: FDA-Public Use
  Company Number: US-ABBOTT-05P-163-0318367-00

PATIENT
  Sex: Male
  Weight: 77 kg

DRUGS (19)
  1. RITONAVIR SOFT GELATIN CAPSULES [Suspect]
     Indication: HIV INFECTION
     Route: 048
     Dates: start: 20040128, end: 20050518
  2. RITONAVIR SOFT GELATIN CAPSULES [Suspect]
     Route: 048
     Dates: start: 20050519, end: 20050619
  3. TMC114 [Concomitant]
     Indication: HIV INFECTION
     Dosage: 2 DOSES
     Route: 048
     Dates: start: 20040128, end: 20050518
  4. TMC114 [Concomitant]
     Route: 048
     Dates: start: 20050519, end: 20050619
  5. ALLOPURINOL [Concomitant]
     Indication: DRUG USE FOR UNKNOWN INDICATION
     Route: 048
  6. TENOFOVIR [Concomitant]
     Indication: HIV INFECTION
     Route: 048
     Dates: start: 20040211
  7. DIDANOSINE [Concomitant]
     Indication: HIV INFECTION
     Route: 048
     Dates: start: 20040211
  8. NIFEDIPINE [Concomitant]
     Indication: ANGINA PECTORIS
     Route: 048
  9. BACTRIM [Concomitant]
     Indication: ANTIBIOTIC PROPHYLAXIS
     Dosage: 1 DOSE
     Route: 048
  10. AZITHROMYCIN [Concomitant]
     Indication: ANTIBIOTIC PROPHYLAXIS
     Route: 048
  11. TAMSULOSIN HYDROCHLORIDE [Concomitant]
     Indication: BENIGN PROSTATIC HYPERPLASIA
     Route: 048
  12. INSULIN LISPRO [Concomitant]
     Indication: DIABETES MELLITUS
     Route: 058
  13. ALPRAZOLAM [Concomitant]
     Indication: ANXIETY
     Route: 048
  14. HYDROCODONE [Concomitant]
     Indication: PAIN
     Route: 048
  15. ZOLPIDEM TARTRATE [Concomitant]
     Indication: INSOMNIA
     Route: 048
     Dates: start: 20040801
  16. TESTOSTERONE [Concomitant]
     Indication: HYPOGONADISM
     Route: 061
     Dates: start: 20041020
  17. CITICOLINE SODIUM [Concomitant]
     Indication: NEURALGIA
     Route: 048
  18. VALACYCLOVIR HCL [Concomitant]
     Indication: HERPES ZOSTER
     Dates: start: 20050322
  19. ENFUVERTIDE [Concomitant]
     Indication: DRUG USE FOR UNKNOWN INDICATION
     Route: 030
     Dates: start: 20040307

REACTIONS (10)
  - ACQUIRED IMMUNODEFICIENCY SYNDROME [None]
  - ATELECTASIS [None]
  - CACHEXIA [None]
  - FLUID OVERLOAD [None]
  - HEPATIC CIRRHOSIS [None]
  - HIV WASTING SYNDROME [None]
  - METABOLIC ACIDOSIS [None]
  - PLEURAL EFFUSION [None]
  - PNEUMONIA [None]
  - RENAL FAILURE ACUTE [None]
